FAERS Safety Report 19189197 (Version 2)
Quarter: 2021Q2

REPORT INFORMATION
  Report Type: Spontaneous
  Country: ES (occurrence: ES)
  Receive Date: 20210428
  Receipt Date: 20210506
  Transmission Date: 20210717
  Serious: Yes (Hospitalization, Other)
  Sender: FDA-Public Use
  Company Number: ES-PFIZER INC-2021438412

PATIENT
  Age: 60 Year
  Sex: Female
  Weight: 60 kg

DRUGS (7)
  1. PEGFILGRASTIM [Concomitant]
     Active Substance: PEGFILGRASTIM
     Indication: TRIPLE NEGATIVE BREAST CANCER
     Dosage: 6 MG ON DAY +2
  2. CARBOPLATIN. [Concomitant]
     Active Substance: CARBOPLATIN
     Indication: TRIPLE NEGATIVE BREAST CANCER
     Dosage: AU5
  3. CYCLOPHOSPHAMIDE. [Concomitant]
     Active Substance: CYCLOPHOSPHAMIDE
     Indication: TRIPLE NEGATIVE BREAST CANCER
     Dosage: 600 MG/M2 BIWEEKLY
  4. DOCETAXEL. [Suspect]
     Active Substance: DOCETAXEL
     Indication: TRIPLE NEGATIVE BREAST CANCER
     Dosage: 75 MG/M2, CYCLIC
  5. DOCETAXEL. [Interacting]
     Active Substance: DOCETAXEL
     Dosage: 70 MG/M2, CYCLIC
  6. FLUVOXAMINE [Interacting]
     Active Substance: FLUVOXAMINE
     Indication: ANTIDEPRESSANT THERAPY
     Dosage: UNK
  7. EPIRUBICIN [Concomitant]
     Active Substance: EPIRUBICIN
     Indication: TRIPLE NEGATIVE BREAST CANCER
     Dosage: 95 MG/M2 BIWEEKLY

REACTIONS (8)
  - Drug interaction [Unknown]
  - Neutropenia [Unknown]
  - Syncope [Unknown]
  - Pseudomonas infection [Unknown]
  - Asthenia [Unknown]
  - Decreased appetite [Unknown]
  - Septic shock [Unknown]
  - Toxicity to various agents [Unknown]
